FAERS Safety Report 9565649 (Version 1)
Quarter: 2013Q3

REPORT INFORMATION
  Report Type: Spontaneous
  Country: US (occurrence: US)
  Receive Date: 20130930
  Receipt Date: 20130930
  Transmission Date: 20140515
  Serious: Yes (Hospitalization)
  Sender: FDA-Public Use
  Company Number: US-B.I. PHARMACEUTICALS,INC./RIDGEFIELD-2013-BI-29796BP

PATIENT
  Age: 81 Year
  Sex: Male
  Weight: 98 kg

DRUGS (2)
  1. PRADAXA [Suspect]
     Indication: ATRIAL FIBRILLATION
     Dosage: 300 MG
     Route: 048
     Dates: start: 201301, end: 20130919
  2. PRADAXA [Suspect]
     Dosage: 300 MG
     Route: 048
     Dates: end: 2013

REACTIONS (2)
  - Rectal haemorrhage [Recovered/Resolved]
  - Haemorrhage [Unknown]
